FAERS Safety Report 6470628-6 (Version None)
Quarter: 2009Q4

REPORT INFORMATION
  Report Type: 
  Country: None (occurrence: None)
  Receive Date: 20091203
  Receipt Date: 20091120
  Transmission Date: 20100525
  Serious: Yes (Death)
  Sender: FDA-Public Use
  Company Number: JP-MYLANLABS-2009S1020289

PATIENT
  Age: 60 Year
  Sex: Female

DRUGS (2)
  1. METHOTREXATE [Suspect]
     Indication: RHEUMATOID ARTHRITIS
     Route: 048
     Dates: start: 20060601, end: 20080901
  2. RHEUMATREX /00113801/ [Suspect]
     Indication: RHEUMATOID ARTHRITIS
     Dates: end: 20080601

REACTIONS (1)
  - MALIGNANT MELANOMA [None]
